FAERS Safety Report 17939564 (Version 1)
Quarter: 2020Q2

REPORT INFORMATION
  Report Type: Spontaneous
  Country: US (occurrence: US)
  Receive Date: 20200625
  Receipt Date: 20200625
  Transmission Date: 20200714
  Serious: No
  Sender: FDA-Public Use
  Company Number: US-ELI_LILLY_AND_COMPANY-US202006010746

PATIENT
  Sex: Female

DRUGS (2)
  1. VERZENIO [Suspect]
     Active Substance: ABEMACICLIB
     Indication: BREAST CANCER METASTATIC
     Dosage: 150 MG, UNKNOWN
     Route: 065
     Dates: start: 2015, end: 202005
  2. AI [Concomitant]
     Active Substance: ESTRADIOL VALERATE\NORETHINDRONE ENANTHATE

REACTIONS (1)
  - Insomnia [Not Recovered/Not Resolved]
